FAERS Safety Report 23683970 (Version 1)
Quarter: 2024Q1

REPORT INFORMATION
  Report Type: Spontaneous
  Country: US (occurrence: US)
  Receive Date: 20240328
  Receipt Date: 20240328
  Transmission Date: 20240410
  Serious: Yes (Hospitalization)
  Sender: FDA-Public Use
  Company Number: US-BRISTOL-MYERS SQUIBB COMPANY-2024-049759

PATIENT
  Age: 67 Year
  Sex: Female

DRUGS (2)
  1. OPDIVO [Suspect]
     Active Substance: NIVOLUMAB
     Indication: Renal cancer
     Dosage: STRENGTH: OPDIVO: 240 MG AND 120 MG VIAL
  2. YERVOY [Suspect]
     Active Substance: IPILIMUMAB
     Indication: Renal cancer
     Dosage: STRENGTH: YERVOY: 50 MG VIAL

REACTIONS (1)
  - Hospitalisation [Unknown]
